FAERS Safety Report 21470839 (Version 3)
Quarter: 2022Q4

REPORT INFORMATION
  Report Type: Spontaneous
  Country: SI (occurrence: None)
  Receive Date: 20221018
  Receipt Date: 20221123
  Transmission Date: 20230113
  Serious: Yes (Hospitalization)
  Sender: FDA-Public Use
  Company Number: 2022A346039

PATIENT
  Age: 31163 Day
  Sex: Male
  Weight: 80 kg

DRUGS (13)
  1. EVUSHELD [Suspect]
     Active Substance: CILGAVIMAB\TIXAGEVIMAB
     Indication: COVID-19
     Dosage: CILGAVIMAB 150 MG, TIXAVIMAB 150 MG300.0MG ONCE/SINGLE ADMINISTRATION
     Route: 030
  2. EVUSHELD [Suspect]
     Active Substance: CILGAVIMAB\TIXAGEVIMAB
     Indication: Chemotherapy
     Dosage: CILGAVIMAB 150 MG, TIXAVIMAB 150 MG300.0MG ONCE/SINGLE ADMINISTRATION
     Route: 030
  3. EVUSHELD [Suspect]
     Active Substance: CILGAVIMAB\TIXAGEVIMAB
     Indication: Acute myeloid leukaemia
     Dosage: CILGAVIMAB 150 MG, TIXAVIMAB 150 MG300.0MG ONCE/SINGLE ADMINISTRATION
     Route: 030
  4. EVUSHELD [Suspect]
     Active Substance: CILGAVIMAB\TIXAGEVIMAB
     Indication: COVID-19
     Dosage: CILGAVIMAB 150 MG, TIXAVIMAB 150 MG300.0MG ONCE/SINGLE ADMINISTRATION
     Route: 030
     Dates: start: 20220720
  5. EVUSHELD [Suspect]
     Active Substance: CILGAVIMAB\TIXAGEVIMAB
     Indication: Chemotherapy
     Dosage: CILGAVIMAB 150 MG, TIXAVIMAB 150 MG300.0MG ONCE/SINGLE ADMINISTRATION
     Route: 030
     Dates: start: 20220720
  6. EVUSHELD [Suspect]
     Active Substance: CILGAVIMAB\TIXAGEVIMAB
     Indication: Acute myeloid leukaemia
     Dosage: CILGAVIMAB 150 MG, TIXAVIMAB 150 MG300.0MG ONCE/SINGLE ADMINISTRATION
     Route: 030
     Dates: start: 20220720
  7. COMIRNATY (mRNA) [Concomitant]
     Dosage: 3/3
     Dates: start: 20211125
  8. ALLOPURINOL [Concomitant]
     Active Substance: ALLOPURINOL
     Route: 048
  9. CONTROLOC [Concomitant]
     Active Substance: PANTOPRAZOLE SODIUM
     Route: 048
  10. ATORVASTATIN CALCIUM [Concomitant]
     Active Substance: ATORVASTATIN CALCIUM
     Route: 048
  11. AMLESA [Concomitant]
     Dosage: 8/5 MG
     Route: 048
  12. LERCAPRES [Concomitant]
     Route: 048
  13. ACETAMINOPHEN\TRAMADOL HYDROCHLORIDE [Concomitant]
     Active Substance: ACETAMINOPHEN\TRAMADOL HYDROCHLORIDE
     Dosage: 37.5/325 MG
     Route: 048

REACTIONS (1)
  - COVID-19 [Recovered/Resolved]

NARRATIVE: CASE EVENT DATE: 20220727
